FAERS Safety Report 5053288-0 (Version None)
Quarter: 2006Q3

REPORT INFORMATION
  Report Type: 
  Country: None (occurrence: None)
  Receive Date: 20060712
  Receipt Date: 20060615
  Transmission Date: 20061208
  Serious: Yes (Death, Hospitalization)
  Sender: FDA-Public Use
  Company Number: 5253

PATIENT
  Age: 50 Year
  Sex: Male

DRUGS (6)
  1. CISPLATIN [Suspect]
     Indication: LYMPHADENOPATHY
     Dosage: 33 MG/M2 TID IV
     Route: 042
     Dates: start: 20000101, end: 20000101
  2. CYTARABINE [Suspect]
     Indication: LYMPHADENOPATHY
     Dosage: 2 G/M2 BID
     Dates: start: 20000101
  3. DEXAMETHASONE TAB [Suspect]
     Indication: LYMPHADENOPATHY
     Dosage: 160 MG PER_CYCLE PO
     Route: 048
     Dates: start: 20000101, end: 20000101
  4. ETOPOSIDE [Concomitant]
  5. CYCLOPHOSPHAMIDE [Concomitant]
  6. CCNU [Concomitant]

REACTIONS (7)
  - COELIAC DISEASE [None]
  - LOWER RESPIRATORY TRACT INFECTION [None]
  - MASS [None]
  - METABOLIC ACIDOSIS [None]
  - PNEUMONIA [None]
  - STEM CELL TRANSPLANT [None]
  - WEIGHT DECREASED [None]
